FAERS Safety Report 16150617 (Version 1)
Quarter: 2019Q2

REPORT INFORMATION
  Report Type: Spontaneous
  Country: US (occurrence: US)
  Receive Date: 20190402
  Receipt Date: 20190402
  Transmission Date: 20190711
  Serious: No
  Sender: FDA-Public Use
  Company Number: None

PATIENT
  Age: 39 Year
  Sex: Female

DRUGS (14)
  1. MIRENA [Concomitant]
     Active Substance: LEVONORGESTREL
  2. OMEPRAZOLE. [Concomitant]
     Active Substance: OMEPRAZOLE
  3. HALOPERIDOL. [Concomitant]
     Active Substance: HALOPERIDOL
  4. BENZTROPINE. [Concomitant]
     Active Substance: BENZTROPINE
  5. COLACE [Concomitant]
     Active Substance: DOCUSATE SODIUM
  6. CELECOXIB. [Concomitant]
     Active Substance: CELECOXIB
  7. KETOROLAC [Concomitant]
     Active Substance: KETOROLAC\KETOROLAC TROMETHAMINE
  8. D2 [Concomitant]
  9. AIMOVIG [Suspect]
     Active Substance: ERENUMAB-AOOE
     Indication: MIGRAINE
     Dosage: ?          OTHER FREQUENCY:MONTHLY;?
     Route: 030
     Dates: start: 20190208
  10. DICLOFENAC SODIUM. [Concomitant]
     Active Substance: DICLOFENAC SODIUM
  11. TOPIRAMATE. [Concomitant]
     Active Substance: TOPIRAMATE
  12. PROBIOTIC [Concomitant]
     Active Substance: PROBIOTICS NOS
  13. B2 [Concomitant]
  14. MELATONIN [Concomitant]
     Active Substance: MELATONIN

REACTIONS (12)
  - Pruritus generalised [None]
  - Irritability [None]
  - Musculoskeletal stiffness [None]
  - Fatigue [None]
  - Myalgia [None]
  - Gait disturbance [None]
  - Mobility decreased [None]
  - Pruritus [None]
  - Mood altered [None]
  - Insomnia [None]
  - Arthralgia [None]
  - Joint stiffness [None]

NARRATIVE: CASE EVENT DATE: 20190208
